FAERS Safety Report 10676117 (Version 1)
Quarter: 2014Q4

REPORT INFORMATION
  Report Type: Spontaneous
  Country: TH (occurrence: TH)
  Receive Date: 20141226
  Receipt Date: 20141226
  Transmission Date: 20150529
  Serious: Yes (Other)
  Sender: FDA-Public Use
  Company Number: TH-PAR PHARMACEUTICAL, INC-2014SCPR009558

PATIENT

DRUGS (1)
  1. ADRENALIN [Suspect]
     Active Substance: EPINEPHRINE
     Dosage: UNK UNK, SINGLE
     Route: 030

REACTIONS (2)
  - Wrong drug administered [Unknown]
  - Thyrotoxic crisis [Recovered/Resolved]
